FAERS Safety Report 5606670-4 (Version None)
Quarter: 2008Q1

REPORT INFORMATION
  Report Type: 
  Country: None (occurrence: None)
  Receive Date: 20080129
  Receipt Date: 20080118
  Transmission Date: 20080703
  Serious: Yes (Death)
  Sender: FDA-Public Use
  Company Number: US-AMGEN-US261474

PATIENT
  Sex: Female

DRUGS (2)
  1. PROCRIT [Suspect]
     Indication: ANAEMIA OF MALIGNANT DISEASE
  2. UNSPECIFIED ANTINEOPLASTIC AGENT [Concomitant]

REACTIONS (1)
  - DEATH [None]
